FAERS Safety Report 8110440-5 (Version None)
Quarter: 2012Q1

REPORT INFORMATION
  Report Type: 
  Country: None (occurrence: None)
  Receive Date: 20120202
  Receipt Date: 20120125
  Transmission Date: 20120608
  Serious: Yes (Hospitalization, Other)
  Sender: FDA-Public Use
  Company Number: US-BAXTER-2012BH002547

PATIENT
  Sex: Male

DRUGS (1)
  1. DIANEAL [Suspect]
     Indication: PERITONEAL DIALYSIS
     Route: 033

REACTIONS (6)
  - RESPIRATORY FAILURE [None]
  - HEAD INJURY [None]
  - FALL [None]
  - NECK INJURY [None]
  - PNEUMONIA [None]
  - DYSPNOEA [None]
